FAERS Safety Report 4923360-1 (Version None)
Quarter: 2006Q1

REPORT INFORMATION
  Report Type: 
  Country: None (occurrence: None)
  Receive Date: 20060227
  Receipt Date: 20060216
  Transmission Date: 20060701
  Serious: Yes (Hospitalization, Other)
  Sender: FDA-Public Use
  Company Number: US-BRISTOL-MYERS SQUIBB COMPANY-13288501

PATIENT
  Age: 73 Year
  Sex: Male
  Weight: 78 kg

DRUGS (8)
  1. COUMADIN [Suspect]
     Indication: ATRIAL FIBRILLATION
     Route: 048
     Dates: start: 20051003, end: 20051005
  2. BIVALIRUDIN [Suspect]
     Indication: ACUTE CORONARY SYNDROME
     Dosage: 0.1 MG/KG INTRAVENOUS BOLUS, FOLLOWED BY 5 MG/KG INTRAVENOUS
     Route: 042
     Dates: start: 20050920, end: 20050927
  3. HEPARIN [Suspect]
     Indication: ACUTE CORONARY SYNDROME
     Dates: start: 20050919, end: 20050927
  4. ASPIRIN [Suspect]
  5. REFLUDAN [Suspect]
     Route: 042
     Dates: start: 20050930, end: 20051006
  6. AMIODARONE [Concomitant]
  7. ZOFRAN [Concomitant]
  8. COMBIVENT [Concomitant]

REACTIONS (3)
  - ATRIAL FIBRILLATION [None]
  - CARDIAC TAMPONADE [None]
  - PLEURAL EFFUSION [None]
